FAERS Safety Report 6147340-6 (Version None)
Quarter: 2009Q2

REPORT INFORMATION
  Report Type: 
  Country: None (occurrence: None)
  Receive Date: 20090408
  Receipt Date: 20090331
  Transmission Date: 20091009
  Serious: Yes (Other)
  Sender: FDA-Public Use
  Company Number: PHHY2009US12043

PATIENT
  Age: 84 Year
  Sex: Female

DRUGS (3)
  1. ZOLEDRONIC ACID [Suspect]
     Dosage: 4 MG EVERY 3-4 WEEKS
  2. HORMONES [Concomitant]
  3. ANTIBACTERIALS FOR SYSTEMIC USE [Concomitant]

REACTIONS (10)
  - ENDODONTIC PROCEDURE [None]
  - GINGIVAL SWELLING [None]
  - IMPAIRED HEALING [None]
  - NECROSIS [None]
  - ORAL INFECTION [None]
  - OSTEONECROSIS [None]
  - PAIN [None]
  - PURULENCE [None]
  - RESORPTION BONE INCREASED [None]
  - TOOTH EXTRACTION [None]
